FAERS Safety Report 15331451 (Version 1)
Quarter: 2018Q3

REPORT INFORMATION
  Report Type: Report from Study
  Country: US (occurrence: US)
  Receive Date: 20180829
  Receipt Date: 20180829
  Transmission Date: 20181010
  Serious: Yes (Hospitalization, Other)
  Sender: FDA-Public Use
  Company Number: US-ADAMAS PHARMA, LLC-2018ADA01641

PATIENT
  Age: 77 Year
  Sex: Male
  Weight: 56.24 kg

DRUGS (17)
  1. STALEVO [Concomitant]
     Active Substance: CARBIDOPA\ENTACAPONE\LEVODOPA
  2. QUETIAPINE. [Concomitant]
     Active Substance: QUETIAPINE
  3. CALCIUM [Concomitant]
     Active Substance: CALCIUM
  4. FLOMAX [Concomitant]
     Active Substance: TAMSULOSIN HYDROCHLORIDE
  5. VITAMIN D3 [Concomitant]
     Active Substance: CHOLECALCIFEROL
  6. GOCOVRI [Suspect]
     Active Substance: AMANTADINE
     Indication: DYSKINESIA
     Dosage: 137 MG, 1X/DAY AT BEDTIME
     Route: 048
     Dates: start: 20180714, end: 20180720
  7. COQ10 [Concomitant]
     Active Substance: UBIDECARENONE
  8. NIFEDIPINE. [Concomitant]
     Active Substance: NIFEDIPINE
  9. GOCOVRI [Suspect]
     Active Substance: AMANTADINE
     Dosage: 274 MG, 1X/DAY AT BEDTIME
     Route: 048
     Dates: start: 20180721, end: 201808
  10. VITAMIN C [Concomitant]
     Active Substance: ASCORBIC ACID
  11. SINEMET [Concomitant]
     Active Substance: CARBIDOPA\LEVODOPA
  12. FINASTERIDE. [Concomitant]
     Active Substance: FINASTERIDE
  13. DEEP BRAIN STIMULATION (BILATERAL) [Concomitant]
  14. SINEMET CR [Concomitant]
     Active Substance: CARBIDOPA\LEVODOPA
  15. VITAMIN B12 [Concomitant]
     Active Substance: CYANOCOBALAMIN
  16. CLONAZEPAM. [Concomitant]
     Active Substance: CLONAZEPAM
  17. MIRAPEX [Concomitant]
     Active Substance: PRAMIPEXOLE DIHYDROCHLORIDE

REACTIONS (9)
  - Gait inability [Recovered/Resolved]
  - Incontinence [Not Recovered/Not Resolved]
  - Blood electrolytes abnormal [Unknown]
  - Constipation [Unknown]
  - Asthenia [Unknown]
  - Faecaloma [Unknown]
  - Arrhythmia [Unknown]
  - Weight decreased [Not Recovered/Not Resolved]
  - Dyskinesia [Unknown]

NARRATIVE: CASE EVENT DATE: 2018
